FAERS Safety Report 14774569 (Version 2)
Quarter: 2018Q2

REPORT INFORMATION
  Report Type: Report from Study
  Country: US (occurrence: US)
  Receive Date: 20180418
  Receipt Date: 20180525
  Transmission Date: 20180711
  Serious: Yes (Death, Other)
  Sender: FDA-Public Use
  Company Number: US-ASTELLAS-2018US018521

PATIENT
  Age: 89 Year
  Sex: Male

DRUGS (1)
  1. ENZALUTAMIDE [Suspect]
     Active Substance: ENZALUTAMIDE
     Indication: PROSTATE CANCER
     Route: 048
     Dates: start: 201803, end: 20180402

REACTIONS (4)
  - Cardiac arrest [Fatal]
  - Cardiac failure congestive [Fatal]
  - Product size issue [Unknown]
  - Choking [Fatal]

NARRATIVE: CASE EVENT DATE: 20180330
